FAERS Safety Report 7247017-X (Version None)
Quarter: 2011Q1

REPORT INFORMATION
  Report Type: 
  Country: None (occurrence: None)
  Receive Date: 20110127
  Receipt Date: 20110119
  Transmission Date: 20110831
  Serious: Yes (Life-Threatening, Hospitalization)
  Sender: FDA-Public Use
  Company Number: AU-JNJFOC-20110105791

PATIENT
  Sex: Male
  Weight: 0.91 kg

DRUGS (7)
  1. VITAMIN D [Suspect]
     Indication: DRUG EXPOSURE DURING PREGNANCY
     Dosage: EXPOSURE: TRIMESTER 1 TO ALL PREGNANCY
     Route: 064
  2. LEVOTHYROXINE SODIUM [Suspect]
     Indication: DRUG EXPOSURE DURING PREGNANCY
     Dosage: EXPOSURE: PRE-PREGANCY TO ALL PREGNANCY
     Route: 064
  3. METFORMIN [Suspect]
     Indication: DRUG EXPOSURE DURING PREGNANCY
     Dosage: EXPOSURE: PRE-PREGNANCY TO 15/40 WEEKS GESTATION
     Route: 064
  4. LITHIUM [Suspect]
     Indication: DRUG EXPOSURE DURING PREGNANCY
     Dosage: EXPOSURE: PRE-PREGNANCY TO 25/40 WEEKS
     Route: 064
  5. FERROUS FUMARATE W/FOLIC ACID [Suspect]
     Indication: DRUG EXPOSURE DURING PREGNANCY
     Dosage: EXPOSURE: TRIMESTER 1 TO ALL PREGNANCY
     Route: 064
  6. RISPERDAL [Suspect]
     Indication: DRUG EXPOSURE DURING PREGNANCY
     Dosage: EXPOSURE: PRE-PREGNANCY TO ALL PREGNANCY
     Route: 064
  7. VITAMIN B-12 [Suspect]
     Indication: DRUG EXPOSURE DURING PREGNANCY
     Dosage: EXPOSURE: TRIMESTER 1 TO ALL PREGNANCY
     Route: 064

REACTIONS (1)
  - PREMATURE BABY [None]
